FAERS Safety Report 14260145 (Version 1)
Quarter: 2017Q4

REPORT INFORMATION
  Report Type: Spontaneous
  Country: US (occurrence: US)
  Receive Date: 20171207
  Receipt Date: 20171207
  Transmission Date: 20180321
  Serious: Yes (Other)
  Sender: FDA-Public Use
  Company Number: US-THE MENTHOLATUM COMPANY-2036901

PATIENT
  Age: 61 Year
  Sex: Female
  Weight: 52.27 kg

DRUGS (1)
  1. OXY FACE WASH MAXIMUM ACITON [Suspect]
     Active Substance: BENZOYL PEROXIDE
     Route: 061
     Dates: start: 20171125, end: 20171125

REACTIONS (1)
  - Chemical burn of skin [Recovered/Resolved]

NARRATIVE: CASE EVENT DATE: 20171125
